FAERS Safety Report 4911204-3 (Version None)
Quarter: 2006Q1

REPORT INFORMATION
  Report Type: 
  Country: None (occurrence: None)
  Receive Date: 20060209
  Receipt Date: 20060127
  Transmission Date: 20060701
  Serious: Yes (Hospitalization)
  Sender: FDA-Public Use
  Company Number: 2006016034

PATIENT
  Age: 73 Year
  Sex: Male
  Weight: 94 kg

DRUGS (10)
  1. ZAVEDOS POWDER, STERILE (IDARUBICIN HYDROCHLORIDE) [Suspect]
     Indication: ACUTE MYELOID LEUKAEMIA
     Dosage: INTRAVENOUS
     Route: 042
     Dates: start: 20051018, end: 20051129
  2. CYTARABINE [Suspect]
     Indication: ACUTE MYELOID LEUKAEMIA
     Dosage: INTRAVENOUS
     Route: 042
     Dates: start: 20051018, end: 20051203
  3. VFEND [Suspect]
     Indication: ILL-DEFINED DISORDER
  4. CAPTOPRIL AND HYDROCHLOROTHIAZIDE [Suspect]
     Indication: ILL-DEFINED DISORDER
     Dosage: 1 DOSE FORM (INTERVAL: EVERY DAY), ORAL
     Route: 048
     Dates: end: 20051219
  5. SIMVASTATIN [Suspect]
     Indication: ILL-DEFINED DISORDER
     Dosage: 20 MG (1 IN 1 D), ORAL
     Route: 048
     Dates: end: 20051219
  6. CERVOXAN (VINBURNINE) [Suspect]
     Indication: ILL-DEFINED DISORDER
  7. GRANOCYTE (LENOGRASTIM) [Concomitant]
  8. CIRKAN (ASCORBIC ACID, HERBAL EXTRACT NOS, HESPERIDIN METHYL CHALCONE, [Concomitant]
  9. NIFEDIPINE [Concomitant]
  10. BELUSTINE (LOMUSTINE) [Concomitant]

REACTIONS (2)
  - PNEUMONIA [None]
  - RESPIRATORY DISTRESS [None]
